FAERS Safety Report 23548798 (Version 1)
Quarter: 2024Q1

REPORT INFORMATION
  Report Type: Spontaneous
  Country: US (occurrence: None)
  Receive Date: 20240219
  Receipt Date: 20240219
  Transmission Date: 20240410
  Serious: Yes (Other)
  Sender: FDA-Public Use
  Company Number: None

PATIENT
  Age: 55 Year
  Sex: Female
  Weight: 61.65 kg

DRUGS (1)
  1. LATANOPROST PF [Suspect]
     Active Substance: LATANOPROST
     Indication: Glaucoma
     Dosage: FREQUENCY : AT BEDTIME;?
     Route: 047

REACTIONS (2)
  - Sinus pain [None]
  - Paranasal sinus hyposecretion [None]

NARRATIVE: CASE EVENT DATE: 20220901
